FAERS Safety Report 12605728 (Version 1)
Quarter: 2016Q3

REPORT INFORMATION
  Report Type: Spontaneous
  Country: US (occurrence: None)
  Receive Date: 20160728
  Receipt Date: 20160728
  Transmission Date: 20161109
  Serious: Yes (Other)
  Sender: FDA-Public Use
  Company Number: None

PATIENT
  Sex: Female
  Weight: 89.81 kg

DRUGS (2)
  1. RASUVO [Suspect]
     Active Substance: METHOTREXATE SODIUM
     Indication: SOFT TISSUE DISORDER
     Route: 058
     Dates: start: 201607
  2. RASUVO [Suspect]
     Active Substance: METHOTREXATE SODIUM
     Indication: SCIATICA
     Route: 058
     Dates: start: 201607

REACTIONS (2)
  - Headache [None]
  - Asthenia [None]
